FAERS Safety Report 23347541 (Version 3)
Quarter: 2024Q2

REPORT INFORMATION
  Report Type: Spontaneous
  Country: JP (occurrence: None)
  Receive Date: 20231228
  Receipt Date: 20240401
  Transmission Date: 20240716
  Serious: Yes (Life-Threatening, Hospitalization, Other)
  Sender: FDA-Public Use
  Company Number: 2023A291593

PATIENT
  Age: 87 Year
  Sex: Female
  Weight: 45 kg

DRUGS (10)
  1. LOKELMA [Suspect]
     Active Substance: SODIUM ZIRCONIUM CYCLOSILICATE
     Indication: Hyperkalaemia
     Route: 048
     Dates: start: 20211117, end: 20231119
  2. LOKELMA [Suspect]
     Active Substance: SODIUM ZIRCONIUM CYCLOSILICATE
     Indication: Hyperkalaemia
     Route: 048
     Dates: start: 20211117, end: 20231119
  3. AMINO ACIDS, SOURCE UNSPECIFIED [Concomitant]
     Active Substance: AMINO ACIDS, SOURCE UNSPECIFIED
     Dosage: DOSE UNKNOWN
     Route: 048
     Dates: start: 20231117, end: 20231209
  4. URSODIOL [Concomitant]
     Active Substance: URSODIOL
     Dosage: DOSE UNKNOWN
     Route: 048
     Dates: start: 20231117, end: 20231209
  5. TELMISARTAN [Concomitant]
     Active Substance: TELMISARTAN
     Dosage: DOSE UNKNOWN
     Route: 048
     Dates: end: 20231117
  6. NITROFURANTOIN [Concomitant]
     Active Substance: NITROFURANTOIN
     Dosage: DOSE UNKNOWN
     Route: 048
     Dates: start: 20231117, end: 20231209
  7. VONOPRAZAN FUMARATE [Concomitant]
     Active Substance: VONOPRAZAN FUMARATE
     Dosage: DOSE UNKNOWN
     Route: 048
     Dates: start: 20231117, end: 20231209
  8. AZOSEMIDE [Concomitant]
     Active Substance: AZOSEMIDE
     Dosage: DOSE UNKNOWN
     Route: 048
     Dates: start: 20231117, end: 20231209
  9. TOLVAPTAN OD [Concomitant]
     Dosage: DOSE UNKNOWN
     Route: 048
     Dates: start: 20231117, end: 20231209
  10. AMINO ACIDS, SOURCE UNSPECIFIED [Concomitant]
     Active Substance: AMINO ACIDS, SOURCE UNSPECIFIED
     Dosage: DOSE UNKNOWN
     Route: 048
     Dates: start: 20231117, end: 20231209

REACTIONS (8)
  - Gastrointestinal injury [Recovering/Resolving]
  - Hypokalaemia [Recovered/Resolved]
  - Overdose [Unknown]
  - Constipation [Recovered/Resolved with Sequelae]
  - Large intestine perforation [Recovered/Resolved with Sequelae]
  - Renal impairment [Recovering/Resolving]
  - Cerebral microinfarction [Recovering/Resolving]
  - Acute myocardial infarction [Recovering/Resolving]

NARRATIVE: CASE EVENT DATE: 20231209
